FAERS Safety Report 6087269-5 (Version None)
Quarter: 2009Q1

REPORT INFORMATION
  Report Type: 
  Country: None (occurrence: None)
  Receive Date: 20090219
  Receipt Date: 20090219
  Transmission Date: 20090719
  Serious: Yes (Disabling)
  Sender: FDA-Public Use
  Company Number: None

PATIENT
  Sex: Female
  Weight: 94.3482 kg

DRUGS (1)
  1. AMBIEN [Suspect]
     Indication: INSOMNIA

REACTIONS (8)
  - ABNORMAL SLEEP-RELATED EVENT [None]
  - ARTHROPATHY [None]
  - FALL [None]
  - HALLUCINATION, VISUAL [None]
  - MENISCUS LESION [None]
  - MUSCLE STRAIN [None]
  - SOMNAMBULISM [None]
  - TENDON DISORDER [None]
